FAERS Safety Report 7880608-1 (Version None)
Quarter: 2011Q4

REPORT INFORMATION
  Report Type: 
  Country: None (occurrence: None)
  Receive Date: 20111101
  Receipt Date: 20111021
  Transmission Date: 20120403
  Serious: Yes (Hospitalization)
  Sender: FDA-Public Use
  Company Number: US-ROCHE-910201743001

PATIENT
  Age: 30 Year
  Sex: Female
  Weight: 53.5 kg

DRUGS (2)
  1. ACCUTANE [Suspect]
     Route: 048
  2. ACCUTANE [Suspect]
     Indication: ACNE CYSTIC
     Route: 048

REACTIONS (4)
  - CHEILITIS [None]
  - ANAL FISSURE [None]
  - BONE DEVELOPMENT ABNORMAL [None]
  - SKIN ULCER [None]
